FAERS Safety Report 8310416-9 (Version None)
Quarter: 2012Q2

REPORT INFORMATION
  Report Type: 
  Country: None (occurrence: None)
  Receive Date: 20120425
  Receipt Date: 20120410
  Transmission Date: 20120825
  Serious: Yes (Other)
  Sender: FDA-Public Use
  Company Number: DE-ROCHE-1031665

PATIENT
  Sex: Male

DRUGS (1)
  1. TRASTUZUMAB [Suspect]
     Indication: BREAST CANCER
     Route: 064

REACTIONS (2)
  - RENAL FAILURE [None]
  - MATERNAL EXPOSURE TIMING UNSPECIFIED [None]
